FAERS Safety Report 10168000 (Version 1)
Quarter: 2014Q2

REPORT INFORMATION
  Report Type: Spontaneous
  Country: JP (occurrence: JP)
  Receive Date: 20140512
  Receipt Date: 20140512
  Transmission Date: 20141212
  Serious: Yes (Other)
  Sender: FDA-Public Use
  Company Number: PHHY2014JP054846

PATIENT
  Age: 68 Year
  Sex: Male

DRUGS (5)
  1. IRINOTECAN [Suspect]
     Dosage: 150 MG/M2, UNK
     Dates: start: 201001
  2. IRINOTECAN [Suspect]
     Dosage: 120 MG/M2, UNK
     Dates: start: 201001
  3. LEUCOVORIN CALCIUM [Suspect]
     Indication: COLON CANCER
  4. 5-FLUOROURACIL [Suspect]
     Indication: COLON CANCER
  5. BEVACIZUMAB [Suspect]
     Indication: COLON CANCER

REACTIONS (3)
  - Interstitial lung disease [Recovered/Resolved]
  - Rales [Recovered/Resolved]
  - Proteinuria [Unknown]
